FAERS Safety Report 17974597 (Version 1)
Quarter: 2020Q3

REPORT INFORMATION
  Report Type: Spontaneous
  Country: US (occurrence: US)
  Receive Date: 20200702
  Receipt Date: 20200702
  Transmission Date: 20201103
  Serious: Yes (Other)
  Sender: FDA-Public Use
  Company Number: US-PFIZER INC-2020249089

PATIENT
  Sex: Female

DRUGS (1)
  1. PIPERACILLIN/TAZOBACTAM [Suspect]
     Active Substance: PIPERACILLIN SODIUM\TAZOBACTAM SODIUM
     Dosage: 2.5 G, POWDER IN A GLASS VIAL

REACTIONS (5)
  - Exposure via skin contact [Unknown]
  - Product physical issue [Unknown]
  - Traumatic haemorrhage [Unknown]
  - Accidental exposure to product [Unknown]
  - Skin laceration [Unknown]

NARRATIVE: CASE EVENT DATE: 20200626
